FAERS Safety Report 18588740 (Version 5)
Quarter: 2021Q1

REPORT INFORMATION
  Report Type: Spontaneous
  Country: CA (occurrence: CA)
  Receive Date: 20201207
  Receipt Date: 20210324
  Transmission Date: 20210419
  Serious: Yes (Other)
  Sender: FDA-Public Use
  Company Number: CA-CELLTRION INC.-2020CA029746

PATIENT

DRUGS (8)
  1. ASACOL [Concomitant]
     Active Substance: MESALAMINE
     Dosage: 4.8 G, DAILY
  2. INFLECTRA [Suspect]
     Active Substance: INFLIXIMAB-DYYB
     Dosage: 500 MG, EVERY 8 WEEKS (DOSE: 500 MG, FREQUENCY: 8 WEEKS)
     Route: 042
     Dates: start: 20200703
  3. INFLECTRA [Suspect]
     Active Substance: INFLIXIMAB-DYYB
     Dosage: 500 MG, EVERY 8 WEEKS (DOSE: 500 MG, FREQUENCY: 8 WEEKS)
     Route: 042
     Dates: start: 20201125
  4. INFLECTRA [Suspect]
     Active Substance: INFLIXIMAB-DYYB
     Dosage: 500 MG, EVERY 8 WEEKS (DOSE: 500 MG, FREQUENCY: 8 WEEKS)
     Route: 042
     Dates: start: 20210118
  5. INFLECTRA [Suspect]
     Active Substance: INFLIXIMAB-DYYB
     Indication: CROHN^S DISEASE
     Dosage: 300 MG, EVERY 8 WEEKS (DOSE: 300 MG, FREQUENCY: 8 WEEKS)
     Route: 042
     Dates: start: 20200703
  6. INFLECTRA [Suspect]
     Active Substance: INFLIXIMAB-DYYB
     Dosage: 500 MG, EVERY 8 WEEKS (DOSE: 500 MG, FREQUENCY: 8 WEEKS)
     Route: 042
     Dates: start: 20210315
  7. INFLECTRA [Suspect]
     Active Substance: INFLIXIMAB-DYYB
     Dosage: 500 MG, EVERY 8 WEEKS (DOSE: 500 MG, FREQUENCY: 8 WEEKS)
     Route: 042
     Dates: start: 20201008
  8. INFLECTRA [Suspect]
     Active Substance: INFLIXIMAB-DYYB
     Dosage: 500 MG, EVERY 8 WEEKS (DOSE: 500 MG, FREQUENCY: 8 WEEKS)
     Route: 042
     Dates: start: 20210315

REACTIONS (4)
  - Off label use [Unknown]
  - Intentional product use issue [Unknown]
  - Haematochezia [Unknown]
  - Condition aggravated [Unknown]
